FAERS Safety Report 20720658 (Version 2)
Quarter: 2022Q2

REPORT INFORMATION
  Report Type: Spontaneous
  Country: SE (occurrence: SE)
  Receive Date: 20220418
  Receipt Date: 20220602
  Transmission Date: 20220720
  Serious: No
  Sender: FDA-Public Use
  Company Number: SE-PFIZER INC-202200513282

PATIENT
  Sex: Female

DRUGS (1)
  1. FILGRASTIM [Suspect]
     Active Substance: FILGRASTIM
     Indication: Neutropenia
     Dosage: 30 MIU/0.5 ML DAILY

REACTIONS (3)
  - Needle issue [Unknown]
  - Injury associated with device [Unknown]
  - Injection site scar [Unknown]
